FAERS Safety Report 13838056 (Version 2)
Quarter: 2017Q3

REPORT INFORMATION
  Report Type: Report from Study
  Country: None (occurrence: CH)
  Receive Date: 20170807
  Receipt Date: 20170810
  Transmission Date: 20171127
  Serious: Yes (Hospitalization)
  Sender: FDA-Public Use
  Company Number: CH-ABBVIE-17K-151-2059000-00

PATIENT
  Sex: Female

DRUGS (1)
  1. DUODOPA [Suspect]
     Active Substance: CARBIDOPA\LEVODOPA
     Indication: PARKINSON^S DISEASE
     Dosage: MORNING DOSE: 4ML, CONTINUOUS DOSE DAY: 1.3ML/H, EXTRA DOSE: 0.2ML, 16H THERAPY
     Route: 050
     Dates: start: 20120919

REACTIONS (6)
  - Pneumonia aspiration [Unknown]
  - Body temperature increased [Unknown]
  - Stoma site infection [Unknown]
  - Stoma site discharge [Unknown]
  - Urinary tract infection [Unknown]
  - Fatigue [Unknown]
